FAERS Safety Report 8582627-9 (Version None)
Quarter: 2012Q3

REPORT INFORMATION
  Report Type: 
  Country: None (occurrence: None)
  Receive Date: 20120809
  Receipt Date: 20120801
  Transmission Date: 20120928
  Serious: Yes (Hospitalization)
  Sender: FDA-Public Use
  Company Number: JP-UCBSA-062928

PATIENT
  Age: 63 Year
  Sex: Female

DRUGS (9)
  1. CERTOLIZUMAB PEGOL [Suspect]
     Indication: RHEUMATOID ARTHRITIS
     Route: 058
     Dates: start: 20081208
  2. FLURBIPROFEN [Concomitant]
     Dosage: QS
     Dates: start: 20061206
  3. KETOPROFEN [Concomitant]
     Dosage: QS
     Dates: start: 20070105
  4. PREDNISOLONE [Suspect]
     Route: 048
     Dates: start: 20061221
  5. SULFASALAZINE [Concomitant]
     Dates: start: 20080704
  6. URSODIOL [Concomitant]
  7. TEPRENONE [Concomitant]
     Dates: start: 20080829
  8. PRAVASTATIN SODIUM [Concomitant]
     Dates: start: 20031215
  9. LOXOPROFEN SODIUM HYDRATE [Concomitant]
     Dates: start: 20070801

REACTIONS (1)
  - HYPERTENSION [None]
